FAERS Safety Report 8766120 (Version 7)
Quarter: 2018Q3

REPORT INFORMATION
  Report Type: Report from Study
  Country: CA (occurrence: CA)
  Receive Date: 20120904
  Receipt Date: 20180727
  Transmission Date: 20181010
  Serious: Yes (Other)
  Sender: FDA-Public Use
  Company Number: CA-ROCHE-1104836

PATIENT
  Age: 64 Year
  Sex: Female
  Weight: 52.66 kg

DRUGS (9)
  1. MELOXICAM. [Concomitant]
     Active Substance: MELOXICAM
  2. NORVASC [Concomitant]
     Active Substance: AMLODIPINE BESYLATE
  3. ATENOLOL. [Concomitant]
     Active Substance: ATENOLOL
  4. AMITRIPTYLINE [Concomitant]
     Active Substance: AMITRIPTYLINE
  5. PERCOCET [Concomitant]
     Active Substance: ACETAMINOPHEN\OXYCODONE HYDROCHLORIDE
  6. ATIVAN [Concomitant]
     Active Substance: LORAZEPAM
  7. ACTEMRA [Suspect]
     Active Substance: TOCILIZUMAB
     Indication: RHEUMATOID ARTHRITIS
     Route: 042
     Dates: start: 20110629, end: 20121024
  8. FENTANYL. [Concomitant]
     Active Substance: FENTANYL
  9. NEXIUM [Concomitant]
     Active Substance: ESOMEPRAZOLE MAGNESIUM

REACTIONS (12)
  - Diarrhoea [Not Recovered/Not Resolved]
  - Arthralgia [Unknown]
  - Nausea [Not Recovered/Not Resolved]
  - Amnesia [Not Recovered/Not Resolved]
  - Malaise [Not Recovered/Not Resolved]
  - Arthropathy [Unknown]
  - Abdominal discomfort [Not Recovered/Not Resolved]
  - Decreased appetite [Not Recovered/Not Resolved]
  - Drug ineffective [Not Recovered/Not Resolved]
  - Dizziness [Not Recovered/Not Resolved]
  - Weight increased [Not Recovered/Not Resolved]
  - Back pain [Unknown]

NARRATIVE: CASE EVENT DATE: 20110629
